FAERS Safety Report 9890370 (Version 4)
Quarter: 2018Q1

REPORT INFORMATION
  Report Type: Report from Study
  Country: US (occurrence: US)
  Receive Date: 20140212
  Receipt Date: 20180220
  Transmission Date: 20180509
  Serious: Yes (Other)
  Sender: FDA-Public Use
  Company Number: US-ROCHE-1348228

PATIENT
  Age: 55 Year
  Sex: Female
  Weight: 157.54 kg

DRUGS (22)
  1. LANTUS SOLOSTAR [Concomitant]
     Active Substance: INSULIN GLARGINE
     Dosage: 100UNIT/ML
     Route: 065
  2. PANTOPRAZOLE SODIUM. [Concomitant]
     Active Substance: PANTOPRAZOLE SODIUM
     Dosage: DELAYED RELEASE 1 TABLET
     Route: 048
  3. ALBUTEROL SULFATE. [Concomitant]
     Active Substance: ALBUTEROL SULFATE
     Dosage: 1 PUFF
     Route: 065
  4. VICTOZA [Concomitant]
     Active Substance: LIRAGLUTIDE
     Route: 065
  5. ALDACTONE [Concomitant]
     Active Substance: SPIRONOLACTONE
     Route: 048
  6. ESTRADIOL. [Concomitant]
     Active Substance: ESTRADIOL
     Route: 065
  7. NOVOLOG [Concomitant]
     Active Substance: INSULIN ASPART
     Route: 058
  8. PHENTERMINE HCL [Concomitant]
     Active Substance: PHENTERMINE HYDROCHLORIDE
     Route: 048
  9. NUTROPIN AQ [Suspect]
     Active Substance: SOMATROPIN
     Route: 058
  10. OXYCONTIN [Concomitant]
     Active Substance: OXYCODONE HYDROCHLORIDE
     Dosage: EXTENTED RELEASE 1 TABLET
     Route: 048
  11. NUTROPIN AQ [Suspect]
     Active Substance: SOMATROPIN
     Indication: GROWTH HORMONE DEFICIENCY
     Route: 058
  12. ACETAMINOPHEN/HYDROCODONE [Concomitant]
     Active Substance: ACETAMINOPHEN\HYDROCODONE
     Route: 048
  13. METFORMIN HYDROCHLORIDE. [Concomitant]
     Active Substance: METFORMIN HYDROCHLORIDE
     Route: 048
  14. POTASSIUM CHLORIDE. [Concomitant]
     Active Substance: POTASSIUM CHLORIDE
     Dosage: 1 PACKET
     Route: 048
  15. BUPROPION HCL [Concomitant]
     Active Substance: BUPROPION HYDROCHLORIDE
     Route: 048
  16. CARISOPRODOL. [Concomitant]
     Active Substance: CARISOPRODOL
     Dosage: 1 TABLET
     Route: 065
  17. PROMETRIUM (UNITED STATES) [Concomitant]
     Route: 065
  18. LASIX [Concomitant]
     Active Substance: FUROSEMIDE
     Route: 048
  19. LYRICA [Concomitant]
     Active Substance: PREGABALIN
     Dosage: 1 CAPSULE
     Route: 048
  20. NEFAZODONE HCL [Concomitant]
     Active Substance: NEFAZODONE HYDROCHLORIDE
     Dosage: 3 TABLET
     Route: 048
  21. NOVOFINE [Concomitant]
     Active Substance: INSULIN NOS
     Route: 065
  22. INVOKANA [Concomitant]
     Active Substance: CANAGLIFLOZIN
     Route: 048

REACTIONS (8)
  - Fibromyalgia [Unknown]
  - Carpal tunnel syndrome [Not Recovered/Not Resolved]
  - Glycosylated haemoglobin increased [Unknown]
  - High density lipoprotein increased [Unknown]
  - Insulin-like growth factor increased [Unknown]
  - Blood cholesterol increased [Unknown]
  - Blood glucose increased [Unknown]
  - Low density lipoprotein increased [Unknown]

NARRATIVE: CASE EVENT DATE: 20120820
